FAERS Safety Report 21278837 (Version 1)
Quarter: 2022Q3

REPORT INFORMATION
  Report Type: Report from Study
  Country: NL (occurrence: NL)
  Receive Date: 20220901
  Receipt Date: 20220901
  Transmission Date: 20221026
  Serious: Yes (Death, Other)
  Sender: FDA-Public Use
  Company Number: NL-NOVARTISPH-NVSC2022NL145499

PATIENT
  Age: 55 Year
  Sex: Female
  Weight: 119 kg

DRUGS (2)
  1. ASCIMINIB [Suspect]
     Active Substance: ASCIMINIB
     Indication: Chronic myeloid leukaemia
     Dosage: 30 MG, BID
     Route: 065
     Dates: start: 20220511
  2. ASCIMINIB [Suspect]
     Active Substance: ASCIMINIB
     Indication: Acute lymphocytic leukaemia recurrent
     Dosage: 200 MG, BID
     Route: 048
     Dates: start: 20220523, end: 20220525

REACTIONS (8)
  - Death [Fatal]
  - Pancytopenia [Not Recovered/Not Resolved]
  - Fatigue [Unknown]
  - Chronic myeloid leukaemia [Unknown]
  - Acute lymphocytic leukaemia recurrent [Unknown]
  - Malignant neoplasm progression [Unknown]
  - General physical health deterioration [Unknown]
  - Asthenia [Unknown]

NARRATIVE: CASE EVENT DATE: 20220529
